FAERS Safety Report 5303487-5 (Version None)
Quarter: 2007Q2

REPORT INFORMATION
  Report Type: 
  Country: None (occurrence: None)
  Receive Date: 20070420
  Receipt Date: 20070410
  Transmission Date: 20071010
  Serious: Yes (Death, Hospitalization, Other)
  Sender: FDA-Public Use
  Company Number: US-PFIZER INC-2007011972

PATIENT
  Sex: Male

DRUGS (2)
  1. SUTENT [Suspect]
     Indication: RENAL CELL CARCINOMA STAGE UNSPECIFIED
  2. SORAFENIB TOSILATE [Suspect]
     Dates: start: 20060301, end: 20060601

REACTIONS (9)
  - ANAEMIA [None]
  - ASCITES [None]
  - DEHYDRATION [None]
  - DISEASE PROGRESSION [None]
  - FATIGUE [None]
  - OEDEMA [None]
  - RENAL CELL CARCINOMA STAGE UNSPECIFIED [None]
  - RENAL FAILURE [None]
  - THROMBOCYTOPENIA [None]
